FAERS Safety Report 18318010 (Version 1)
Quarter: 2020Q3

REPORT INFORMATION
  Report Type: Spontaneous
  Country: US (occurrence: US)
  Receive Date: 20200928
  Receipt Date: 20200928
  Transmission Date: 20201103
  Serious: No
  Sender: FDA-Public Use
  Company Number: US-PFIZER INC-2020081680

PATIENT
  Age: 71 Year
  Sex: Female
  Weight: 99.79 kg

DRUGS (1)
  1. CELEBREX [Suspect]
     Active Substance: CELECOXIB
     Indication: ARTHRITIS
     Dosage: 200 MG, 1X/DAY
     Route: 048

REACTIONS (4)
  - Spinal osteoarthritis [Unknown]
  - Sensitivity to weather change [Unknown]
  - Hypoaesthesia [Unknown]
  - Feeling abnormal [Unknown]
